FAERS Safety Report 7482619-7 (Version None)
Quarter: 2011Q2

REPORT INFORMATION
  Report Type: 
  Country: None (occurrence: None)
  Receive Date: 20110516
  Receipt Date: 20110511
  Transmission Date: 20111010
  Serious: Yes (Death)
  Sender: FDA-Public Use
  Company Number: FI-ELI_LILLY_AND_COMPANY-FI201104004007

PATIENT
  Sex: Female

DRUGS (3)
  1. LANTUS [Concomitant]
  2. BYETTA [Suspect]
     Indication: DIABETES MELLITUS
     Dosage: 10 UG, BID
     Dates: start: 20070827
  3. INSULIN                            /00646001/ [Concomitant]

REACTIONS (7)
  - EMPHYSEMA [None]
  - LUNG CANCER METASTATIC [None]
  - WEIGHT DECREASED [None]
  - OFF LABEL USE [None]
  - PNEUMONIA [None]
  - NAUSEA [None]
  - DIARRHOEA [None]
